FAERS Safety Report 18126443 (Version 2)
Quarter: 2020Q3

REPORT INFORMATION
  Report Type: Spontaneous
  Country: BR (occurrence: BR)
  Receive Date: 20200808
  Receipt Date: 20200818
  Transmission Date: 20201103
  Serious: Yes (Hospitalization)
  Sender: FDA-Public Use
  Company Number: NVSC2020BR219790

PATIENT
  Sex: Female
  Weight: 90 kg

DRUGS (17)
  1. RISPERIDONE. [Concomitant]
     Active Substance: RISPERIDONE
     Indication: MENTAL DISORDER
     Dosage: 1 DF, QD(STARTED 7 MONTHS AGO)
     Route: 048
  2. CONCARDIO [Concomitant]
     Active Substance: BISOPROLOL FUMARATE
     Indication: HYPERTENSION
     Dosage: 1 DF, BID(STARTEC 2.5 YEARS AGO)
     Route: 048
  3. CONCARDIO [Concomitant]
     Active Substance: BISOPROLOL FUMARATE
     Dosage: 0.5 DF, QD (2 MONTHS AGO)
     Route: 048
  4. SINVASCOR [Concomitant]
     Active Substance: SIMVASTATIN
     Indication: BLOOD CHOLESTEROL INCREASED
     Dosage: 1 DF, QD(STARTED 6 YEARSA GO)
     Route: 048
  5. VENALOT (COUMARIN) [Concomitant]
     Indication: CARDIOVASCULAR INSUFFICIENCY
     Dosage: UNK UNK, QD(BOTH LEGS) (STARTED 2YEARS AGO)
     Route: 061
  6. PANTOPRAZOLE [Concomitant]
     Active Substance: PANTOPRAZOLE
     Indication: PROPHYLAXIS
     Dosage: 1 DF, QD(STARTED 5 MONTHS AGO)
     Route: 048
  7. ESCITALOPRAM [Suspect]
     Active Substance: ESCITALOPRAM OXALATE
     Indication: DEPRESSION
     Dosage: 1 DF, QD
     Route: 048
  8. BRIMONIDINE TARTRATE. [Concomitant]
     Active Substance: BRIMONIDINE TARTRATE
     Indication: GLAUCOMA
     Dosage: 1 DRP, BID(STARTED 7 YEARS AGO)
     Route: 031
  9. MONOCORDIL [Concomitant]
     Active Substance: ISOSORBIDE MONONITRATE
     Indication: HYPERTENSION
     Dosage: 1 DF, BID(STARTED 5 YEARS AGO)
     Route: 048
  10. BIPERIDEN [Concomitant]
     Active Substance: BIPERIDEN
     Indication: MENTAL DISORDER
     Dosage: 1 DF, QD(STARTED 7 MONTHS AGO)
     Route: 048
  11. CLOPIDOGREL [Concomitant]
     Active Substance: CLOPIDOGREL BISULFATE
     Indication: MYOCARDIAL INFARCTION
     Dosage: 1 DF, BID(STARTED 1 AND HALF YEAR AGO)
     Route: 048
  12. OMEPRAZOLE. [Concomitant]
     Active Substance: OMEPRAZOLE
     Indication: PROPHYLAXIS
     Dosage: 2 DF, QD(STARTED 10 YEAS AGO)
     Route: 048
  13. FUROSEMIDE. [Concomitant]
     Active Substance: FUROSEMIDE
     Indication: DIURETIC THERAPY
     Dosage: 1 DF, BID(STARTED 5 YEARS AGO)
     Route: 048
  14. ENTRESTO [Suspect]
     Active Substance: SACUBITRIL\VALSARTAN
     Indication: CARDIOMYOPATHY
     Dosage: 1 DF, BID (STARTED 1 YEAR AND 7 MONTHS AGO)
     Route: 048
  15. AZATHIOPRINE. [Concomitant]
     Active Substance: AZATHIOPRINE
     Indication: PURPURA
     Dosage: 1 DF, TID(STARTED 8 YEARS AGO)
     Route: 048
  16. SPIRONOLACTONE. [Concomitant]
     Active Substance: SPIRONOLACTONE
     Indication: DIURETIC THERAPY
     Dosage: 1 DF, QD(STARTED 5 YEARS AGO)
     Route: 048
  17. METFORMIN [Concomitant]
     Active Substance: METFORMIN HYDROCHLORIDE
     Indication: DIABETES MELLITUS
     Dosage: 1 DF, BID(STARTED 6YEARS AGO)
     Route: 048

REACTIONS (6)
  - Amnesia [Recovering/Resolving]
  - Blood uric acid increased [Unknown]
  - Product use in unapproved indication [Unknown]
  - Localised infection [Recovered/Resolved]
  - Wound [Recovered/Resolved]
  - Insomnia [Recovering/Resolving]

NARRATIVE: CASE EVENT DATE: 202002
